FAERS Safety Report 11134500 (Version 1)
Quarter: 2015Q2

REPORT INFORMATION
  Report Type: Report from Study
  Country: IT (occurrence: IT)
  Receive Date: 20150525
  Receipt Date: 20150525
  Transmission Date: 20150821
  Serious: Yes (Other)
  Sender: FDA-Public Use
  Company Number: IT-ROCHE-1094799

PATIENT
  Age: 70 Year
  Sex: Male
  Weight: 80 kg

DRUGS (18)
  1. VEMURAFENIB [Suspect]
     Active Substance: VEMURAFENIB
     Dosage: LAST DOSE PRIOR TO ONSET OD AE:20/JAN/2012
     Route: 048
     Dates: start: 20111223
  2. LANSOPRAZOLE. [Concomitant]
     Active Substance: LANSOPRAZOLE
     Route: 065
     Dates: start: 20111003
  3. PREDNISONE. [Concomitant]
     Active Substance: PREDNISONE
     Route: 065
     Dates: start: 20111003
  4. METOCLOPRAMIDE. [Concomitant]
     Active Substance: METOCLOPRAMIDE
     Route: 065
     Dates: start: 20111024
  5. FLECAINIDE ACETATE. [Concomitant]
     Active Substance: FLECAINIDE ACETATE
     Route: 065
     Dates: start: 20111223
  6. OSSICODONE [Concomitant]
     Route: 065
     Dates: start: 20111028
  7. BISOPROLOL [Concomitant]
     Active Substance: BISOPROLOL
     Route: 065
     Dates: start: 20111028
  8. VALSARTAN. [Concomitant]
     Active Substance: VALSARTAN
     Route: 065
     Dates: start: 20111223
  9. CARDIOASPIRIN [Concomitant]
     Active Substance: ASPIRIN
     Route: 065
     Dates: start: 20111223
  10. VEMURAFENIB [Suspect]
     Active Substance: VEMURAFENIB
     Dosage: LAST DOSE PRIOR TO ONSET OD AE:16/APR/2012
     Route: 048
     Dates: start: 20120319
  11. CLONAZEPAM. [Concomitant]
     Active Substance: CLONAZEPAM
     Dosage: 5 DROPS
     Route: 065
     Dates: start: 20111209
  12. VEMURAFENIB [Suspect]
     Active Substance: VEMURAFENIB
     Dosage: LAST DOSE PRIOR TO SAE 23/DEC /2011
     Route: 048
     Dates: start: 20111124
  13. VEMURAFENIB [Suspect]
     Active Substance: VEMURAFENIB
     Indication: MALIGNANT MELANOMA
     Dosage: LAST DOSE PRIOR TO SAE 24/NOV/2011?ON 06/MAY/2012, RECEIVED LAST DOSE PRIOR TO SUSPECTED EPITELIOMA
     Route: 048
     Dates: start: 20111026
  14. VEMURAFENIB [Suspect]
     Active Substance: VEMURAFENIB
     Dosage: LAST DOSE PRIOR TO ONSET OD AE:20/FEB/2012
     Route: 048
     Dates: start: 20120120
  15. VEMURAFENIB [Suspect]
     Active Substance: VEMURAFENIB
     Dosage: LAST DOSE PRIOR TO SAE 4/JUN/2012
     Route: 048
     Dates: start: 20111026
  16. VEMURAFENIB [Suspect]
     Active Substance: VEMURAFENIB
     Dosage: LAST DOSE PRIOR TO ONSET OD AE:19/MAR/2012
     Route: 048
     Dates: start: 20120220
  17. VEMURAFENIB [Suspect]
     Active Substance: VEMURAFENIB
     Dosage: LAST DOSE PRIOR TO ONSET OD AE:14/MAY/2012
     Route: 048
     Dates: start: 20120416
  18. VEMURAFENIB [Suspect]
     Active Substance: VEMURAFENIB
     Dosage: LAST DOSE PRIOR TO ONSET OD AE:11/JUN/2012
     Route: 048
     Dates: start: 20120514

REACTIONS (2)
  - Neoplasm [Unknown]
  - Keratoacanthoma [Recovered/Resolved]

NARRATIVE: CASE EVENT DATE: 20120507
